FAERS Safety Report 16742213 (Version 1)
Quarter: 2019Q3

REPORT INFORMATION
  Report Type: Report from Study
  Country: US (occurrence: US)
  Receive Date: 20190826
  Receipt Date: 20190826
  Transmission Date: 20191005
  Serious: Yes (Hospitalization, Other)
  Sender: FDA-Public Use
  Company Number: US-GLAXOSMITHKLINE-US2019GSK152489

PATIENT
  Age: 56 Year
  Sex: Female
  Weight: 65.2 kg

DRUGS (29)
  1. DEXAMETHASONE. [Concomitant]
     Active Substance: DEXAMETHASONE
     Dosage: 4 MG, UNK
     Route: 042
  2. LAMOTRIGINE. [Suspect]
     Active Substance: LAMOTRIGINE
     Indication: PRODUCT USED FOR UNKNOWN INDICATION
     Dosage: UNK UNK, BID
     Route: 048
     Dates: end: 20190328
  3. DILANTIN [Suspect]
     Active Substance: PHENYTOIN
     Indication: SEIZURE
     Dosage: UNK UNK, BID
     Dates: start: 20190618, end: 20190624
  4. ACETYLCARNITINE [Concomitant]
     Active Substance: ACETYLCARNITINE
  5. METHYLSULFONYLMETHANE [Concomitant]
     Active Substance: DIMETHYL SULFONE
  6. CANNABIDIOL [Concomitant]
     Active Substance: CANNABIDIOL
  7. UBIDECARENONE [Concomitant]
     Active Substance: UBIDECARENONE
  8. DEXAMETHASONE. [Concomitant]
     Active Substance: DEXAMETHASONE
     Indication: SUPERIOR MESENTERIC ARTERY SYNDROME
     Dosage: 4 MG, BID
     Route: 042
  9. DILANTIN [Suspect]
     Active Substance: PHENYTOIN
     Dosage: 100 MG, TID
     Dates: start: 201907, end: 201907
  10. KEPPRA [Concomitant]
     Active Substance: LEVETIRACETAM
     Indication: SEIZURE PROPHYLAXIS
     Dosage: 500/1000 MG, BID
     Dates: start: 20190403
  11. KEPPRA [Concomitant]
     Active Substance: LEVETIRACETAM
     Dosage: 1000 UNK, UNK
  12. RESVERATROL [Concomitant]
     Active Substance: DIETARY SUPPLEMENT\RESVERATROL
  13. L-CARNOSINE [Concomitant]
     Active Substance: CARNOSINE
  14. VALERIAN [Concomitant]
     Active Substance: VALERIAN
  15. MANNITOL. [Concomitant]
     Active Substance: MANNITOL
     Indication: SUPERIOR MESENTERIC ARTERY SYNDROME
  16. DILANTIN [Suspect]
     Active Substance: PHENYTOIN
     Dosage: 300 MG, BID
     Dates: start: 20190729
  17. LAMOTRIGINE. [Suspect]
     Active Substance: LAMOTRIGINE
     Dosage: 200 UNK, UNK
     Route: 048
     Dates: start: 20190329
  18. ZINC. [Concomitant]
     Active Substance: ZINC
  19. D-RIBOSE [Concomitant]
     Active Substance: DIETARY SUPPLEMENT
  20. R-ALPHA LIPOIC ACID [Concomitant]
  21. IBUPROFEN. [Concomitant]
     Active Substance: IBUPROFEN
  22. GLIADEL [Suspect]
     Active Substance: CARMUSTINE
     Indication: GLIOMA
     Dosage: 46.2 MG, QID
     Dates: start: 20180330
  23. DILANTIN [Suspect]
     Active Substance: PHENYTOIN
     Dosage: 200 UNK, UNK
     Dates: start: 20190627, end: 2019
  24. VITAMIN C [Concomitant]
     Active Substance: ASCORBIC ACID
  25. LORAZEPAM. [Concomitant]
     Active Substance: LORAZEPAM
  26. OMEGA 3 FATTY ACID [Concomitant]
     Active Substance: OMEGA-3 FATTY ACIDS
  27. PYRROLOQUINOLINE QUINONE [Concomitant]
  28. ASTAXANTHIN [Concomitant]
     Active Substance: ASTAXANTHIN
  29. VITAMIN D3 [Concomitant]
     Active Substance: CHOLECALCIFEROL

REACTIONS (17)
  - Seizure [Recovered/Resolved]
  - Facial paralysis [Unknown]
  - Nausea [Recovered/Resolved]
  - Neck pain [Unknown]
  - Muscular weakness [Recovering/Resolving]
  - Malignant neoplasm progression [Recovering/Resolving]
  - Hypoaesthesia oral [Recovered/Resolved]
  - Tremor [Not Recovered/Not Resolved]
  - Focal dyscognitive seizures [Unknown]
  - Vomiting [Recovered/Resolved]
  - Neoplasm progression [Recovering/Resolving]
  - Dizziness [Recovered/Resolved]
  - Speech disorder [Recovered/Resolved]
  - Fall [Recovered/Resolved]
  - Headache [Recovered/Resolved]
  - Paraesthesia oral [Recovered/Resolved]
  - Balance disorder [Recovered/Resolved]

NARRATIVE: CASE EVENT DATE: 20180520
